FAERS Safety Report 15702858 (Version 1)
Quarter: 2018Q4

REPORT INFORMATION
  Report Type: Spontaneous
  Country: US (occurrence: US)
  Receive Date: 20181210
  Receipt Date: 20181210
  Transmission Date: 20190205
  Serious: Yes (Other)
  Sender: FDA-Public Use
  Company Number: None

PATIENT
  Age: 61 Year
  Sex: Female
  Weight: 81 kg

DRUGS (8)
  1. HCTZ 25 MG [Concomitant]
  2. TRINTELLIX [Suspect]
     Active Substance: VORTIOXETINE HYDROBROMIDE
     Indication: DEPRESSION
     Dosage: ?          QUANTITY:1 TABLET(S);?
     Route: 048
  3. NAPROXEN 500 MG [Concomitant]
     Active Substance: NAPROXEN
  4. FISH OIL [Concomitant]
     Active Substance: FISH OIL
  5. COQ 10 200 [Concomitant]
  6. CALCIUN CITRATE [Concomitant]
  7. RANITIDINE 150 MG [Concomitant]
     Active Substance: RANITIDINE
  8. RRED YEAST RICE [Concomitant]

REACTIONS (8)
  - Agitation [None]
  - Physical assault [None]
  - Anxiety [None]
  - Memory impairment [None]
  - Anger [None]
  - Suicidal ideation [None]
  - Tachyphrenia [None]
  - Obsessive rumination [None]

NARRATIVE: CASE EVENT DATE: 20181119
